FAERS Safety Report 6180145-9 (Version None)
Quarter: 2009Q2

REPORT INFORMATION
  Report Type: 
  Country: None (occurrence: None)
  Receive Date: 20090501
  Receipt Date: 20090424
  Transmission Date: 20091009
  Serious: Yes (Other)
  Sender: FDA-Public Use
  Company Number: 254135

PATIENT
  Age: 56 Year
  Sex: Female

DRUGS (7)
  1. HEPARIN SODIUM [Suspect]
     Indication: CORONARY ARTERY BYPASS
     Dosage: INTRAVENOUS
     Route: 042
  2. ESTRADIOL [Concomitant]
  3. PROPAFENONE HCL [Concomitant]
  4. DIGOXIN [Concomitant]
  5. ATENOLOL [Concomitant]
  6. ASPIRIN [Concomitant]
  7. FLUOXETINE [Concomitant]

REACTIONS (15)
  - ATELECTASIS [None]
  - ATRIAL THROMBOSIS [None]
  - BLOOD FIBRINOGEN DECREASED [None]
  - BLOOD PH INCREASED [None]
  - DEEP VEIN THROMBOSIS [None]
  - ELECTROCARDIOGRAM T WAVE INVERSION [None]
  - HAEMOGLOBIN DECREASED [None]
  - HEPARIN-INDUCED THROMBOCYTOPENIA [None]
  - HYPOXIA [None]
  - INTERNATIONAL NORMALISED RATIO INCREASED [None]
  - LUNG INFILTRATION [None]
  - PLEURAL EFFUSION [None]
  - PULMONARY EMBOLISM [None]
  - RETICULOCYTE COUNT INCREASED [None]
  - VENA CAVA THROMBOSIS [None]
